FAERS Safety Report 17372182 (Version 1)
Quarter: 2020Q1

REPORT INFORMATION
  Report Type: Spontaneous
  Country: FI (occurrence: FI)
  Receive Date: 20200205
  Receipt Date: 20200205
  Transmission Date: 20200409
  Serious: Yes (Other)
  Sender: FDA-Public Use
  Company Number: FI-009507513-2001FIN010734

PATIENT
  Sex: Male

DRUGS (1)
  1. PROSCAR [Suspect]
     Active Substance: FINASTERIDE
     Indication: ALOPECIA
     Dosage: UNK
     Route: 065

REACTIONS (6)
  - Orgasm abnormal [Recovering/Resolving]
  - Sexual dysfunction [Unknown]
  - Catastrophic reaction [Unknown]
  - Hypoaesthesia [Recovering/Resolving]
  - Loss of libido [Unknown]
  - Suicidal ideation [Unknown]
